FAERS Safety Report 4905659-8 (Version None)
Quarter: 2006Q1

REPORT INFORMATION
  Report Type: 
  Country: None (occurrence: None)
  Receive Date: 20060113
  Receipt Date: 20050916
  Transmission Date: 20060701
  Serious: No
  Sender: FDA-Public Use
  Company Number: 2005SP002736

PATIENT
  Age: 34 Year
  Sex: Female
  Weight: 45.3597 kg

DRUGS (2)
  1. LUNESTA [Suspect]
     Indication: INITIAL INSOMNIA
     Dosage: 2 MG;HS;ORAL, 1 MG;HS;ORAL
     Route: 048
     Dates: start: 20050801, end: 20050801
  2. LUNESTA [Suspect]
     Indication: INITIAL INSOMNIA
     Dosage: 2 MG;HS;ORAL, 1 MG;HS;ORAL
     Route: 048
     Dates: start: 20050801

REACTIONS (2)
  - AGEUSIA [None]
  - THROAT IRRITATION [None]
